FAERS Safety Report 9128804 (Version 1)
Quarter: 2013Q1

REPORT INFORMATION
  Report Type: Spontaneous
  Country: CA (occurrence: CA)
  Receive Date: 20130125
  Receipt Date: 20130125
  Transmission Date: 20140127
  Serious: Yes (Hospitalization)
  Sender: FDA-Public Use
  Company Number: CA-009507513-1301CAN011909

PATIENT
  Sex: Female

DRUGS (3)
  1. VICTRELIS [Suspect]
     Indication: HEPATITIS C
     Dosage: 2 X 100 MICROGRAM, UNK
     Route: 048
  2. PEGETRON [Suspect]
     Indication: HEPATITIS C
     Dosage: .5 ML, UNK
     Route: 058
  3. PEGETRON [Suspect]
     Dosage: UNK
     Route: 048

REACTIONS (2)
  - Dehydration [Unknown]
  - Nausea [Unknown]
